FAERS Safety Report 6727676-8 (Version None)
Quarter: 2010Q2

REPORT INFORMATION
  Report Type: 
  Country: None (occurrence: None)
  Receive Date: 20100512
  Receipt Date: 20100503
  Transmission Date: 20101027
  Serious: Yes (Hospitalization, Other)
  Sender: FDA-Public Use
  Company Number: JHP201000152

PATIENT
  Age: 19 Year
  Sex: Male
  Weight: 78 kg

DRUGS (9)
  1. ADRENALIN CHLORIDE SOLUTION (EPINEPHRINE) INJECTION , 0.3 MG/ML [Suspect]
     Indication: HAEMOSTASIS
     Dosage: 0.3 MG/L IN 1 L NORMAL SALINE FOR IRRIGATION
  2. GLYCOPYRROLATE [Concomitant]
  3. MIDAZOLAM HYDROCHLORIDE [Concomitant]
  4. PROPOFOL [Concomitant]
  5. LIDOCAINE HCL [Concomitant]
  6. ROCURONIUM BROMIDE [Concomitant]
  7. NITROUS OXIDE W/ OXYGEN [Concomitant]
  8. HYDROCORTISONE [Concomitant]
  9. CEFAZOLIN SODIUM [Concomitant]

REACTIONS (5)
  - EJECTION FRACTION DECREASED [None]
  - PULMONARY OEDEMA [None]
  - RESUSCITATION [None]
  - VENTRICULAR TACHYCARDIA [None]
  - WRONG TECHNIQUE IN DRUG USAGE PROCESS [None]
